FAERS Safety Report 5733085-0 (Version None)
Quarter: 2008Q2

REPORT INFORMATION
  Report Type: 
  Country: None (occurrence: None)
  Receive Date: 20080509
  Receipt Date: 20080502
  Transmission Date: 20081010
  Serious: Yes (Disabling, Other)
  Sender: FDA-Public Use
  Company Number: GR-NOVOPROD-273390

PATIENT
  Age: 61 Year
  Sex: Male
  Weight: 100 kg

DRUGS (6)
  1. LEVEMIR [Suspect]
     Indication: TYPE 2 DIABETES MELLITUS
     Dosage: 26 IU, QD
     Route: 058
     Dates: start: 20080315, end: 20080316
  2. LEVEMIR [Suspect]
     Dosage: 26 IU, QD
     Route: 058
     Dates: start: 20080316, end: 20080317
  3. ATACAND HCT [Concomitant]
     Indication: HYPERTENSION
     Route: 048
     Dates: start: 20030101
  4. SALOSPIR                           /00002701/ [Concomitant]
     Indication: TYPE 2 DIABETES MELLITUS
     Dosage: 100 MG, QD
     Route: 048
     Dates: start: 19980101
  5. TENORMIN [Concomitant]
     Indication: HYPERTENSION
     Dosage: 50 MG, QD
     Route: 048
     Dates: start: 19980101
  6. INEGY [Concomitant]
     Indication: DYSLIPIDAEMIA
     Dosage: 10 MG, QD
     Route: 048
     Dates: start: 20070101

REACTIONS (5)
  - INJECTION SITE ERYTHEMA [None]
  - OEDEMA MOUTH [None]
  - PHARYNGEAL OEDEMA [None]
  - PRURITUS GENERALISED [None]
  - TONGUE OEDEMA [None]
